FAERS Safety Report 5716441-6 (Version None)
Quarter: 2008Q2

REPORT INFORMATION
  Report Type: 
  Country: None (occurrence: None)
  Receive Date: 20080424
  Receipt Date: 20080414
  Transmission Date: 20081010
  Serious: Yes (Other)
  Sender: FDA-Public Use
  Company Number: DE-WYE-G01393308

PATIENT
  Age: 75 Year
  Sex: Female

DRUGS (16)
  1. VENLAFAXINE HCL [Suspect]
     Indication: DEPRESSION
     Route: 048
     Dates: end: 20041214
  2. VENLAFAXINE HCL [Interacting]
     Route: 048
     Dates: start: 20050111, end: 20050116
  3. RYTHMOL [Concomitant]
     Route: 048
  4. ENALAPRIL MALEATE [Interacting]
     Route: 048
  5. NORVASC [Concomitant]
     Route: 048
  6. ESIDRIX [Interacting]
     Route: 048
  7. SORTIS [Concomitant]
     Route: 048
  8. LEVODOPA [Concomitant]
     Route: 048
  9. KALINOR [Concomitant]
     Route: 048
  10. CIPRALEX [Interacting]
     Route: 048
  11. ACIMETHIN [Concomitant]
     Route: 048
  12. CEBION [Concomitant]
     Route: 048
  13. PANTOPRAZOLE SODIUM [Concomitant]
     Route: 048
  14. MOVICOL [Concomitant]
  15. MARCUMAR [Concomitant]
     Route: 048
  16. LITHIUM CARBONATE [Interacting]
     Route: 048

REACTIONS (4)
  - CONSTIPATION [None]
  - DRUG INTERACTION [None]
  - FALL [None]
  - GAIT DISTURBANCE [None]
